FAERS Safety Report 9339776 (Version 1)
Quarter: 2013Q2

REPORT INFORMATION
  Report Type: Spontaneous
  Country: US (occurrence: US)
  Receive Date: 20130610
  Receipt Date: 20130610
  Transmission Date: 20140414
  Serious: Yes (Other)
  Sender: FDA-Public Use
  Company Number: US-ASTELLAS-2013US002887

PATIENT
  Age: 81 Year
  Sex: Male

DRUGS (3)
  1. XTANDI [Suspect]
     Indication: PRODUCT USED FOR UNKNOWN INDICATION
     Dosage: 160 MG, UID/QD
     Route: 048
     Dates: start: 20130220
  2. LASIX                              /00032601/ [Concomitant]
     Indication: PRODUCT USED FOR UNKNOWN INDICATION
     Dosage: UNK
     Route: 065
  3. LASIX                              /00032601/ [Concomitant]
     Dosage: DOUBLED THE DOSE
     Route: 065
     Dates: start: 20130228

REACTIONS (6)
  - Oedema peripheral [Unknown]
  - Nasopharyngitis [Unknown]
  - Anxiety [Unknown]
  - Fatigue [Unknown]
  - Back pain [Unknown]
  - Dizziness [Unknown]
